FAERS Safety Report 10754331 (Version 1)
Quarter: 2015Q1

REPORT INFORMATION
  Report Type: Spontaneous
  Country: US (occurrence: None)
  Receive Date: 20150130
  Receipt Date: 20150130
  Transmission Date: 20150721
  Serious: Yes (Other)
  Sender: FDA-Public Use
  Company Number: None

PATIENT
  Age: 66 Year
  Sex: Female
  Weight: 65.77 kg

DRUGS (1)
  1. ENBREL [Suspect]
     Active Substance: ETANERCEPT
     Indication: RHEUMATOID ARTHRITIS
     Dosage: STRENGTH: 50MG, DOSE FORM: INJECTABLE, FREQUENCY: WEEKLY, ROUTE: SUBCUTANEOUS 057
     Route: 058
     Dates: start: 20140925

REACTIONS (2)
  - Sinusitis [None]
  - Upper respiratory tract infection [None]

NARRATIVE: CASE EVENT DATE: 20150112
